APPROVED DRUG PRODUCT: CHLORPROMAZINE HYDROCHLORIDE
Active Ingredient: CHLORPROMAZINE HYDROCHLORIDE
Strength: 200MG
Dosage Form/Route: TABLET;ORAL
Application: A085748 | Product #002
Applicant: KV PHARMACEUTICAL CO
Approved: Jan 4, 1982 | RLD: No | RS: No | Type: DISCN